FAERS Safety Report 18549776 (Version 2)
Quarter: 2020Q4

REPORT INFORMATION
  Report Type: Spontaneous
  Country: GB (occurrence: GB)
  Receive Date: 20201126
  Receipt Date: 20201209
  Transmission Date: 20210114
  Serious: Yes (Other)
  Sender: FDA-Public Use
  Company Number: GB-SA-2020SA335156

PATIENT

DRUGS (1)
  1. RIFAMPICIN [Suspect]
     Active Substance: RIFAMPIN
     Indication: DRUG PROVOCATION TEST
     Dosage: 300 MG
     Route: 048
     Dates: start: 2017

REACTIONS (2)
  - Hypersensitivity [Recovered/Resolved]
  - Drug reaction with eosinophilia and systemic symptoms [Recovered/Resolved]

NARRATIVE: CASE EVENT DATE: 2017
